FAERS Safety Report 8010070-X (Version None)
Quarter: 2011Q4

REPORT INFORMATION
  Report Type: 
  Country: None (occurrence: None)
  Receive Date: 20111228
  Receipt Date: 20111219
  Transmission Date: 20120403
  Serious: Yes (Other)
  Sender: FDA-Public Use
  Company Number: GB-BRISTOL-MYERS SQUIBB COMPANY-16300477

PATIENT
  Age: 64 Year
  Sex: Female

DRUGS (5)
  1. METFORMIN HCL [Concomitant]
     Dosage: MODIFIED RELEASE TABS
     Route: 048
  2. OMEPRAZOLE [Concomitant]
     Route: 048
  3. ONGLYZA [Suspect]
     Indication: TYPE 2 DIABETES MELLITUS
     Route: 048
     Dates: start: 20111006
  4. RAMIPRIL [Concomitant]
     Route: 048
  5. FERROUS FUMARATE [Concomitant]
     Route: 048

REACTIONS (4)
  - COUGH [None]
  - ABDOMINAL PAIN UPPER [None]
  - NAUSEA [None]
  - ORAL HERPES [None]
